FAERS Safety Report 7339181-9 (Version None)
Quarter: 2011Q1

REPORT INFORMATION
  Report Type: 
  Country: None (occurrence: None)
  Receive Date: 20110308
  Receipt Date: 20110226
  Transmission Date: 20110831
  Serious: Yes (Death)
  Sender: FDA-Public Use
  Company Number: HU-ACTELION-A-CH2011-45898

PATIENT
  Sex: Male
  Weight: 70 kg

DRUGS (6)
  1. TRACLEER [Suspect]
     Indication: PULMONARY ARTERIAL HYPERTENSION
     Dosage: 125 MG, BID
     Route: 048
     Dates: start: 20090501, end: 20110205
  2. TRACLEER [Suspect]
     Dosage: 62.5 MG, BID
     Route: 048
     Dates: start: 20090420, end: 20090501
  3. SILDENAFIL [Concomitant]
  4. DIGOXIN [Concomitant]
  5. FUROSEMID [Concomitant]
  6. ACENOCOUMAROL [Concomitant]

REACTIONS (1)
  - RIGHT VENTRICULAR FAILURE [None]
